FAERS Safety Report 16457215 (Version 10)
Quarter: 2019Q4

REPORT INFORMATION
  Report Type: Spontaneous
  Country: DE (occurrence: DE)
  Receive Date: 20190620
  Receipt Date: 20191226
  Transmission Date: 20200122
  Serious: Yes (Hospitalization, Other)
  Sender: FDA-Public Use
  Company Number: DE-PFIZER INC-2019255435

PATIENT
  Age: 55 Year
  Sex: Female

DRUGS (10)
  1. PANTOZOL [Suspect]
     Active Substance: PANTOPRAZOLE SODIUM
     Dosage: 40 MG, 1X/DAY (QD)
     Route: 065
  2. METHADONE HYDROCHLORIDE. [Suspect]
     Active Substance: METHADONE HYDROCHLORIDE
     Indication: DRUG THERAPY
     Dosage: 52 GTT DROPS, QD
     Route: 048
     Dates: start: 2017
  3. LEVETIRACETAM. [Suspect]
     Active Substance: LEVETIRACETAM
     Indication: GLIOBLASTOMA MULTIFORME
     Dosage: 250 MG, 2X/DAY
     Route: 048
  4. TEMOZOLOMIDE. [Concomitant]
     Active Substance: TEMOZOLOMIDE
     Indication: GLIOBLASTOMA
     Dosage: UNK
  5. COLECALCIFEROL [Concomitant]
     Active Substance: CHOLECALCIFEROL
     Indication: OSTEOPOROSIS
     Dosage: 200 INTERNATIONAL UNIT
     Route: 048
     Dates: start: 201804
  6. METHADONE HYDROCHLORIDE. [Suspect]
     Active Substance: METHADONE HYDROCHLORIDE
     Indication: GLIOBLASTOMA MULTIFORME
     Dosage: 26 MG, 2X/DAY
     Route: 048
     Dates: start: 2017
  7. DEXAMETHASONE. [Suspect]
     Active Substance: DEXAMETHASONE
     Indication: GLIOBLASTOMA MULTIFORME
     Dosage: 12 MILLIGRAM, QD
     Route: 048
     Dates: start: 201803, end: 201804
  8. LEVETIRACETAM. [Suspect]
     Active Substance: LEVETIRACETAM
     Indication: EPILEPSY
  9. METHADONE HYDROCHLORIDE. [Suspect]
     Active Substance: METHADONE HYDROCHLORIDE
     Indication: OFF LABEL USE
  10. VIGANTOL [COLECALCIFEROL] [Suspect]
     Active Substance: CHOLECALCIFEROL
     Indication: OSTEOPOROSIS
     Dosage: 2000 IU, UNK
     Route: 048
     Dates: end: 201804

REACTIONS (21)
  - Hemiparesis [Unknown]
  - Poor quality sleep [Unknown]
  - Confusional state [Unknown]
  - White matter lesion [Unknown]
  - Fatigue [Unknown]
  - Mobility decreased [Unknown]
  - Fall [Recovered/Resolved]
  - Glioblastoma multiforme [Recovering/Resolving]
  - Dysphagia [Unknown]
  - Aphasia [Unknown]
  - Psychomotor retardation [Unknown]
  - Foot deformity [Unknown]
  - Coordination abnormal [Unknown]
  - Restlessness [Unknown]
  - Disturbance in attention [Not Recovered/Not Resolved]
  - Malignant neoplasm progression [Recovering/Resolving]
  - General physical health deterioration [Unknown]
  - Asthenia [Unknown]
  - Femoral neck fracture [Recovered/Resolved]
  - Weight bearing difficulty [Unknown]
  - Pain [Unknown]

NARRATIVE: CASE EVENT DATE: 20180227
